FAERS Safety Report 16201711 (Version 1)
Quarter: 2019Q2

REPORT INFORMATION
  Report Type: Spontaneous
  Country: GB (occurrence: GB)
  Receive Date: 20190416
  Receipt Date: 20190416
  Transmission Date: 20190711
  Serious: Yes (Other)
  Sender: FDA-Public Use
  Company Number: GB-SA-2018SA190620

PATIENT
  Age: 36 Year
  Sex: Female

DRUGS (5)
  1. METFORMIN [Concomitant]
     Active Substance: METFORMIN HYDROCHLORIDE
  2. DALTEPARIN [Concomitant]
     Active Substance: DALTEPARIN
  3. TOUJEO [Suspect]
     Active Substance: INSULIN GLARGINE
     Indication: GESTATIONAL DIABETES
     Dosage: 25 U, UNK
  4. NOVORAPID [Concomitant]
     Active Substance: INSULIN ASPART
  5. TOUJEO [Suspect]
     Active Substance: INSULIN GLARGINE
     Indication: DRUG HYPERSENSITIVITY

REACTIONS (3)
  - Caesarean section [Unknown]
  - Exposure during pregnancy [Unknown]
  - Blood glucose increased [Unknown]
